FAERS Safety Report 4455523-6 (Version None)
Quarter: 2004Q3

REPORT INFORMATION
  Report Type: 
  Country: None (occurrence: None)
  Receive Date: 20040922
  Receipt Date: 20040624
  Transmission Date: 20050211
  Serious: Yes (Hospitalization, Other)
  Sender: FDA-Public Use
  Company Number: PHEH2004US06887

PATIENT
  Age: 54 Year
  Sex: Female

DRUGS (21)
  1. ZOMETA [Suspect]
     Indication: MULTIPLE MYELOMA
     Dosage: UNK, UNK
     Route: 042
     Dates: start: 20000101, end: 20040521
  2. AREDIA [Suspect]
     Indication: MULTIPLE MYELOMA
     Dates: start: 20000901
  3. XYLOCAINE [Concomitant]
     Indication: ANAESTHESIA
  4. VELCADE [Concomitant]
     Indication: MULTIPLE MYELOMA
  5. THALIDOMIDE [Concomitant]
     Dosage: 50 MG, UNK
  6. PENTAMIDINE [Concomitant]
  7. EPOGEN [Concomitant]
  8. ACYCLOVIR [Concomitant]
  9. DEXAMETHASONE [Concomitant]
  10. CYTOXAN [Concomitant]
  11. VITAMIN B6 [Concomitant]
  12. AMBIEN [Concomitant]
  13. WARFARIN SODIUM [Concomitant]
  14. ELAVIL [Concomitant]
  15. RANITIDINE [Concomitant]
  16. FOLIC ACID [Concomitant]
  17. NEURONTIN [Concomitant]
  18. VFEND [Concomitant]
  19. CHEMOTHERAPEUTICS,OTHER [Concomitant]
  20. ANZEMET [Concomitant]
  21. ARANESP [Concomitant]
     Dosage: 400 UNK, UNK
     Dates: start: 20040611

REACTIONS (28)
  - ANAEMIA [None]
  - BLOOD CALCIUM DECREASED [None]
  - BLOOD LACTATE DEHYDROGENASE INCREASED [None]
  - BLOOD UREA INCREASED [None]
  - BONE DISORDER [None]
  - CD4 LYMPHOCYTES DECREASED [None]
  - CHROMOSOME ABNORMALITY [None]
  - DENTAL PROSTHESIS PLACEMENT [None]
  - EXOSTOSIS [None]
  - FRONTAL SINUS OPERATIONS [None]
  - HAEMATOCRIT DECREASED [None]
  - HAEMOGLOBIN DECREASED [None]
  - IMPAIRED HEALING [None]
  - NEUROPATHY [None]
  - OSTEONECROSIS [None]
  - PAIN [None]
  - PROTEIN TOTAL DECREASED [None]
  - PYREXIA [None]
  - SINUS OPERATION [None]
  - SINUSITIS [None]
  - STAPHYLOCOCCAL BACTERAEMIA [None]
  - STAPHYLOCOCCAL INFECTION [None]
  - THROMBOCYTOPENIA [None]
  - TOOTH DISORDER [None]
  - TOOTH IMPACTED [None]
  - TOOTH LOSS [None]
  - WHITE BLOOD CELL COUNT DECREASED [None]
  - WOUND DEBRIDEMENT [None]
